FAERS Safety Report 7700965-6 (Version None)
Quarter: 2011Q3

REPORT INFORMATION
  Report Type: 
  Country: None (occurrence: None)
  Receive Date: 20110822
  Receipt Date: 20110808
  Transmission Date: 20111222
  Serious: Yes (Hospitalization, Other)
  Sender: FDA-Public Use
  Company Number: US-CELGENEUS-163-21880-11072012

PATIENT
  Sex: Male
  Weight: 100.24 kg

DRUGS (22)
  1. PROVENTIL-HFA [Concomitant]
     Dosage: 90 MICROGRAM
     Route: 065
  2. COUMADIN [Concomitant]
     Indication: ANTICOAGULANT THERAPY
     Dosage: 5 MILLIGRAM
     Route: 065
  3. AVASTIN [Concomitant]
     Dosage: 25 MILLIGRAM/MILLILITERS
     Route: 065
  4. SPIRONOLACTONE [Concomitant]
     Dosage: 25 MILLIGRAM
     Route: 065
  5. DEXAMETHASONE [Concomitant]
     Dosage: 12 MILLIGRAM
     Route: 048
  6. AMBIEN CR [Concomitant]
     Dosage: 6.25 MILLIGRAM
     Route: 065
  7. ZOMETA [Concomitant]
     Dosage: 4MG/5ML
     Route: 065
  8. CO Q-10 [Concomitant]
     Dosage: 100 MILLIGRAM
     Route: 048
  9. LISINOPRIL [Concomitant]
     Dosage: 2.5 MILLIGRAM
     Route: 048
  10. CULTURELLE [Concomitant]
     Dosage: 10 BILLION CELLS
     Route: 048
  11. VELCADE [Concomitant]
     Dosage: 3.5 MILLIGRAM
     Route: 065
  12. AMIODARONE HCL [Concomitant]
     Dosage: 200 MILLIGRAM
     Route: 048
  13. ZOLOFT [Concomitant]
     Dosage: 100 MILLIGRAM
     Route: 048
  14. RHINOCORT [Concomitant]
     Dosage: 32 MICROGRAM
     Route: 065
  15. ALLEGRA [Concomitant]
     Dosage: 180 MILLIGRAM
     Route: 048
  16. REVLIMID [Suspect]
     Indication: MULTIPLE MYELOMA
     Dosage: 25 MILLIGRAM
     Route: 048
     Dates: start: 20091030
  17. FUROSEMIDE [Concomitant]
     Dosage: 20 MILLIGRAM
     Route: 048
  18. REQUIP [Concomitant]
     Dosage: 1 MILLIGRAM
     Route: 048
  19. ICAPS [Concomitant]
     Route: 065
  20. CARVEDILOL [Concomitant]
     Dosage: 3.125 MILLIGRAM
     Route: 048
  21. SINGULAIR [Concomitant]
     Dosage: 10 MILLIGRAM
     Route: 065
  22. CENTRUM SILVER [Concomitant]
     Dosage: 1 TABLET
     Route: 048

REACTIONS (4)
  - PULMONARY FIBROSIS [None]
  - AMYLOIDOSIS [None]
  - CARDIOMYOPATHY [None]
  - ATRIAL FIBRILLATION [None]
